FAERS Safety Report 24822207 (Version 1)
Quarter: 2025Q1

REPORT INFORMATION
  Report Type: Other
  Country: CN (occurrence: CN)
  Receive Date: 20250108
  Receipt Date: 20250108
  Transmission Date: 20250409
  Serious: Yes (Congenital Anomaly)
  Sender: MERCK KGAA
  Company Number: CN-Merck Healthcare KGaA-2025000229

PATIENT

DRUGS (1)
  1. EUTHYROX [Suspect]
     Active Substance: LEVOTHYROXINE SODIUM
     Indication: Hypothyroidism
     Route: 064

REACTIONS (2)
  - Goitre [Unknown]
  - Foetal exposure during pregnancy [Unknown]
